FAERS Safety Report 9537318 (Version 1)
Quarter: 2013Q3

REPORT INFORMATION
  Report Type: Spontaneous
  Country: US (occurrence: None)
  Receive Date: 20130918
  Receipt Date: 20130918
  Transmission Date: 20140515
  Serious: Yes (Other)
  Sender: FDA-Public Use
  Company Number: None

PATIENT
  Age: 31 Year
  Sex: Female
  Weight: 52.16 kg

DRUGS (1)
  1. REGLAN [Suspect]
     Indication: VOMITING
     Dosage: 1 TIME ER INJECTION AS NEEDED INTO THE MUSCLE
     Route: 030

REACTIONS (3)
  - Myalgia [None]
  - Muscle spasms [None]
  - Muscle disorder [None]
